FAERS Safety Report 17217851 (Version 1)
Quarter: 2019Q4

REPORT INFORMATION
  Report Type: Spontaneous
  Country: CA (occurrence: CA)
  Receive Date: 20191231
  Receipt Date: 20191231
  Transmission Date: 20200122
  Serious: Yes (Death, Hospitalization, Other)
  Sender: FDA-Public Use
  Company Number: CA-LUPIN PHARMACEUTICALS INC.-2019-08782

PATIENT
  Age: 88 Year
  Sex: Male

DRUGS (1)
  1. POLYETHYLENE GLYCOL 3350 POWDER [Suspect]
     Active Substance: POLYETHYLENE GLYCOL 3350
     Indication: CONSTIPATION
     Dosage: 17 GRAM, QD
     Route: 048

REACTIONS (3)
  - Dysphagia [Unknown]
  - Drug interaction [Fatal]
  - Aspiration [Fatal]
